FAERS Safety Report 9085006 (Version 1)
Quarter: 2013Q1

REPORT INFORMATION
  Report Type: Report from Study
  Country: US (occurrence: US)
  Receive Date: 20130130
  Receipt Date: 20130130
  Transmission Date: 20140127
  Serious: No
  Sender: FDA-Public Use
  Company Number: US-ABBOTT-12P-163-0984274-00

PATIENT
  Age: 45 Year
  Sex: Female
  Weight: 49.94 kg

DRUGS (4)
  1. HUMIRA [Suspect]
     Indication: COLITIS ULCERATIVE
     Dates: start: 20120921, end: 20120921
  2. COLAZAL [Concomitant]
     Indication: COLITIS ULCERATIVE
  3. ESTRADIAL  (NON-ABBOTT) [Concomitant]
     Indication: HORMONE REPLACEMENT THERAPY
  4. UNNAMED MEDICATION (NON-ABBOTT) [Concomitant]
     Indication: SEASONAL ALLERGY

REACTIONS (2)
  - Off label use [Not Recovered/Not Resolved]
  - Colitis ulcerative [Not Recovered/Not Resolved]
